FAERS Safety Report 5656455-8 (Version None)
Quarter: 2008Q1

REPORT INFORMATION
  Report Type: 
  Country: None (occurrence: None)
  Receive Date: 20080309
  Receipt Date: 20080114
  Transmission Date: 20080703
  Serious: No
  Sender: FDA-Public Use
  Company Number: US-BAYER-200810251BCC

PATIENT
  Age: 76 Year
  Sex: Female
  Weight: 95 kg

DRUGS (6)
  1. ALEVE [Suspect]
     Indication: ARTHRALGIA
     Dosage: TOTAL DAILY DOSE: 880 MG  UNIT DOSE: 220 MG
     Route: 048
     Dates: start: 20070701
  2. ARETHORIZON [Concomitant]
  3. BUPROPION HCL [Concomitant]
  4. GLIPIZIDE [Concomitant]
  5. VYTORIN [Concomitant]
  6. ARICEPT [Concomitant]

REACTIONS (1)
  - ARTHRALGIA [None]
